FAERS Safety Report 12488726 (Version 1)
Quarter: 2016Q2

REPORT INFORMATION
  Report Type: Spontaneous
  Country: DK (occurrence: DK)
  Receive Date: 20160622
  Receipt Date: 20160622
  Transmission Date: 20160815
  Serious: Yes (Death, Life-Threatening, Hospitalization, Other)
  Sender: FDA-Public Use
  Company Number: DK-B.I. PHARMACEUTICALS,INC./RIDGEFIELD-2016-BI-39753DB

PATIENT
  Age: 79 Year
  Sex: Female
  Weight: 80 kg

DRUGS (1)
  1. PRADAXA [Suspect]
     Active Substance: DABIGATRAN ETEXILATE MESYLATE
     Indication: ATRIAL FIBRILLATION
     Dosage: 220 MG
     Route: 048
     Dates: start: 20160224, end: 20160604

REACTIONS (18)
  - Infection [Unknown]
  - Blood alkaline phosphatase increased [Unknown]
  - Tachycardia [Unknown]
  - Hepatic failure [Fatal]
  - Multiple organ dysfunction syndrome [Fatal]
  - Anaemia [Unknown]
  - Hyperkalaemia [Unknown]
  - Blood bilirubin increased [Unknown]
  - Haematemesis [Unknown]
  - Depressed level of consciousness [Unknown]
  - Renal impairment [Fatal]
  - Cardiac failure [Fatal]
  - Haemoglobin decreased [Unknown]
  - International normalised ratio increased [Unknown]
  - Respiratory acidosis [Unknown]
  - Blood pressure decreased [Unknown]
  - Gastric haemorrhage [Fatal]
  - Life support [Unknown]

NARRATIVE: CASE EVENT DATE: 201604
